FAERS Safety Report 7521545-1 (Version None)
Quarter: 2011Q2

REPORT INFORMATION
  Report Type: 
  Country: None (occurrence: None)
  Receive Date: 20110603
  Receipt Date: 20110601
  Transmission Date: 20111010
  Serious: No
  Sender: FDA-Public Use
  Company Number: US-BAYER-2011-047580

PATIENT
  Sex: Female

DRUGS (3)
  1. YAZ [Suspect]
  2. DIFLUCAN [Concomitant]
     Indication: TINEA INFECTION
     Dosage: 150 MG, BID
     Route: 048
     Dates: start: 20110523, end: 20110523
  3. DIFLUCAN [Concomitant]
     Dosage: 150 MG, QD
     Route: 048
     Dates: start: 20110501, end: 20110501

REACTIONS (1)
  - MENSTRUATION DELAYED [None]
